FAERS Safety Report 6120572-9 (Version None)
Quarter: 2009Q1

REPORT INFORMATION
  Report Type: 
  Country: None (occurrence: None)
  Receive Date: 20090312
  Receipt Date: 20090312
  Transmission Date: 20090719
  Serious: Yes (Hospitalization)
  Sender: FDA-Public Use
  Company Number: None

PATIENT
  Sex: Male
  Weight: 75.8 kg

DRUGS (2)
  1. FLUDARABINE PHOSPHATE [Suspect]
     Indication: ACUTE MYELOID LEUKAEMIA
     Dosage: 72 MG DAILY X 5 IV
     Route: 042
     Dates: start: 20081230, end: 20090104
  2. CYCLOPHOSPHAMIDE [Suspect]
     Indication: ACUTE MYELOID LEUKAEMIA
     Dosage: 2100 MG DAILY X2 IV
     Route: 042
     Dates: start: 20090104, end: 20090105

REACTIONS (12)
  - ACUTE GRAFT VERSUS HOST DISEASE IN INTESTINE [None]
  - ACUTE MYELOID LEUKAEMIA [None]
  - CORD BLOOD TRANSPLANT THERAPY [None]
  - COUGH [None]
  - GRAFT VERSUS HOST DISEASE [None]
  - HYPERHIDROSIS [None]
  - INFLUENZA [None]
  - NASAL CONGESTION [None]
  - NAUSEA [None]
  - PNEUMONIA [None]
  - UPPER RESPIRATORY TRACT INFECTION [None]
  - VOMITING [None]
